FAERS Safety Report 24704464 (Version 1)
Quarter: 2024Q4

REPORT INFORMATION
  Report Type: Spontaneous
  Country: US (occurrence: US)
  Receive Date: 20241206
  Receipt Date: 20241206
  Transmission Date: 20250114
  Serious: Yes (Hospitalization, Other)
  Sender: BAXTER
  Company Number: US-BAXTER-2024BAX028585

PATIENT
  Age: 22 Year
  Sex: Female
  Weight: 97.1 kg

DRUGS (6)
  1. DOXORUBICIN [Suspect]
     Active Substance: DOXORUBICIN
     Indication: Hodgkin^s disease
     Dosage: 15 MG CYCLIC, DAY 1 + 8 OF EACH 21-DAY CYCLE, INTRAVENOUS, AS PART OF PEMBRO-GVD
     Route: 042
     Dates: start: 20240705, end: 20240912
  2. GEMCITABINE HYDROCHLORIDE [Suspect]
     Active Substance: GEMCITABINE HYDROCHLORIDE
     Indication: Hodgkin^s disease
     Dosage: 1000 MG CYCLIC, DAY 1 + 8 OF EACH 21-DAY CYCLE, AS PART OF PEMBRO-GVD
     Route: 042
     Dates: start: 20240705, end: 20240912
  3. BRENTUXIMAB VEDOTIN [Suspect]
     Active Substance: BRENTUXIMAB VEDOTIN
     Indication: Hodgkin^s disease
     Dosage: 1.2 MG/KG CYCLIC, ONCE EVERY TWO WEEKS
     Route: 042
     Dates: start: 20240510, end: 20240622
  4. PEMBROLIZUMAB [Suspect]
     Active Substance: PEMBROLIZUMAB
     Indication: Hodgkin^s disease
     Dosage: 200 MG, EVERY 3 WEEKS, AS PART OF PEMBRO-GVD
     Route: 042
     Dates: start: 20240705, end: 20240912
  5. VINORELBINE [Suspect]
     Active Substance: VINORELBINE TARTRATE
     Indication: Hodgkin^s disease
     Dosage: 20 MG CYCLIC, DAY 1 + 8 OF EACH 21-DAY CYCLE, AS PART OF PEMBRO-GVD
     Route: 042
     Dates: start: 20240705, end: 20240912
  6. NEULASTA [Suspect]
     Active Substance: PEGFILGRASTIM
     Indication: Hodgkin^s disease
     Dosage: UNK
     Route: 065
     Dates: start: 20240510, end: 20240912

REACTIONS (5)
  - Pulmonary infarction [Unknown]
  - Pneumonia [Recovered/Resolved]
  - Pyrexia [Recovered/Resolved]
  - Pulmonary embolism [Unknown]
  - Pleural effusion [Unknown]

NARRATIVE: CASE EVENT DATE: 20240919
